FAERS Safety Report 5800408-3 (Version None)
Quarter: 2008Q3

REPORT INFORMATION
  Report Type: 
  Country: None (occurrence: None)
  Receive Date: 20080703
  Receipt Date: 20080620
  Transmission Date: 20090109
  Serious: Yes (Hospitalization)
  Sender: FDA-Public Use
  Company Number: JP-ABBOTT-07P-087-0420500-00

PATIENT
  Age: 73 Year
  Sex: Male

DRUGS (13)
  1. LEUPLIN DEPOT [Suspect]
     Indication: PROSTATE CANCER STAGE II
     Route: 058
     Dates: start: 20060126, end: 20060126
  2. LEUPLIN DEPOT [Suspect]
     Route: 058
     Dates: start: 20060320, end: 20060320
  3. LEUPLIN DEPOT [Suspect]
     Route: 058
     Dates: start: 20060417, end: 20060417
  4. LEUPLIN DEPOT [Suspect]
     Route: 058
     Dates: start: 20060714, end: 20060714
  5. LEUPLIN DEPOT [Suspect]
     Route: 058
     Dates: start: 20060929, end: 20060929
  6. LEUPLIN DEPOT [Suspect]
     Route: 058
     Dates: start: 20061222, end: 20061222
  7. LEUPLIN DEPOT [Suspect]
     Route: 058
     Dates: start: 20070316, end: 20070316
  8. LEUPLIN DEPOT [Suspect]
     Route: 058
     Dates: start: 20070615, end: 20070615
  9. LEUPLIN DEPOT [Suspect]
     Route: 058
     Dates: start: 20070914, end: 20070914
  10. EPIRUBICIN [Concomitant]
     Indication: BLADDER CANCER
     Route: 043
     Dates: start: 20060512, end: 20060630
  11. SODIUM CHLORIDE 0.9% [Concomitant]
     Indication: BLADDER CANCER
     Route: 043
     Dates: start: 20060512, end: 20060630
  12. CEFCAPENE PIVOXIL HYDROCHLORIDE [Concomitant]
     Indication: INFECTION PROPHYLAXIS
     Route: 048
     Dates: start: 20060512, end: 20060630
  13. CEFCAPENE PIVOXIL HYDROCHLORIDE [Concomitant]
     Route: 048
     Dates: start: 20061222, end: 20061222

REACTIONS (1)
  - BLADDER CANCER RECURRENT [None]
